FAERS Safety Report 5257795-7 (Version None)
Quarter: 2007Q1

REPORT INFORMATION
  Report Type: 
  Country: None (occurrence: None)
  Receive Date: 20070307
  Receipt Date: 20060725
  Transmission Date: 20070707
  Serious: No
  Sender: FDA-Public Use
  Company Number: 2006UW15015

PATIENT
  Age: 47 Year
  Sex: Female
  Weight: 54.4 kg

DRUGS (1)
  1. CRESTOR [Suspect]
     Indication: BLOOD CHOLESTEROL INCREASED
     Route: 048
     Dates: start: 20060724

REACTIONS (2)
  - ABDOMINAL PAIN [None]
  - PAIN IN EXTREMITY [None]
